FAERS Safety Report 12578949 (Version 4)
Quarter: 2017Q2

REPORT INFORMATION
  Report Type: Report from Study
  Country: IQ (occurrence: IQ)
  Receive Date: 20160721
  Receipt Date: 20170427
  Transmission Date: 20170830
  Serious: Yes (Other)
  Sender: FDA-Public Use
  Company Number: PHHY2015IQ103302

PATIENT
  Age: 28 Year
  Sex: Male

DRUGS (3)
  1. GLIVEC [Suspect]
     Active Substance: IMATINIB MESYLATE
     Indication: CHRONIC MYELOID LEUKAEMIA
     Dosage: 400 MG, QD
     Route: 048
     Dates: start: 2012, end: 20151211
  2. GLIVEC [Suspect]
     Active Substance: IMATINIB MESYLATE
     Dosage: 200 MG, QD
     Route: 048
     Dates: start: 20151211, end: 20151228
  3. GLIVEC [Suspect]
     Active Substance: IMATINIB MESYLATE
     Dosage: 400 MG, QD
     Route: 048
     Dates: start: 20151228

REACTIONS (17)
  - Abdominal pain [Unknown]
  - Prescribed underdose [Unknown]
  - Leukopenia [Not Recovered/Not Resolved]
  - Fatigue [Not Recovered/Not Resolved]
  - Anxiety [Not Recovered/Not Resolved]
  - Influenza [Not Recovered/Not Resolved]
  - Furuncle [Not Recovered/Not Resolved]
  - Dizziness [Recovering/Resolving]
  - Vomiting [Not Recovered/Not Resolved]
  - Pyrexia [Not Recovered/Not Resolved]
  - Calculus urinary [Unknown]
  - Abdominal pain [Recovered/Resolved]
  - Nausea [Recovering/Resolving]
  - Leukopenia [Recovered/Resolved]
  - Decreased appetite [Recovered/Resolved]
  - Hydronephrosis [Unknown]
  - Renal colic [Recovering/Resolving]

NARRATIVE: CASE EVENT DATE: 201509
